FAERS Safety Report 4353287-8 (Version None)
Quarter: 2004Q2

REPORT INFORMATION
  Report Type: 
  Country: None (occurrence: None)
  Receive Date: 20040504
  Receipt Date: 20040504
  Transmission Date: 20050107
  Serious: Yes (Disabling)
  Sender: FDA-Public Use
  Company Number: None

PATIENT
  Age: 44 Year
  Sex: Female
  Weight: 85.7298 kg

DRUGS (14)
  1. HUMIRA [Suspect]
     Indication: RHEUMATOID ARTHRITIS
     Dosage: 40 MG BIWEEKLY
     Dates: start: 20030101, end: 20031215
  2. DIPHENHYDRAMINE HCL [Concomitant]
  3. METHOTREXATE [Concomitant]
  4. ALENDRONATE SODIUM [Concomitant]
  5. LOPERAMIDE HCL [Concomitant]
  6. NOTRIPTYLINE [Concomitant]
  7. PLAQUENIL [Concomitant]
  8. LOMOTIL [Concomitant]
  9. PREDNISONE [Concomitant]
  10. CIPROFLOXACIN [Concomitant]
  11. ACETAMINOPHEN [Concomitant]
  12. VITAMIN C [Concomitant]
  13. CALCIUM SUPPLEMENT [Concomitant]
  14. MULTI-VITAMIN [Concomitant]

REACTIONS (5)
  - BALANCE DISORDER [None]
  - DIFFICULTY IN WALKING [None]
  - FALL [None]
  - GAIT DISTURBANCE [None]
  - HYPOREFLEXIA [None]
